FAERS Safety Report 5014566-4 (Version None)
Quarter: 2006Q2

REPORT INFORMATION
  Report Type: 
  Country: None (occurrence: None)
  Receive Date: 20060525
  Receipt Date: 20060512
  Transmission Date: 20061013
  Serious: Yes (Hospitalization, Other)
  Sender: FDA-Public Use
  Company Number: 2006030408

PATIENT
  Age: 45 Year
  Sex: Male

DRUGS (2)
  1. BEXTRA [Suspect]
     Indication: ILL-DEFINED DISORDER
  2. BACTRIM DS [Concomitant]

REACTIONS (6)
  - LYMPHADENOPATHY [None]
  - MALAISE [None]
  - MYALGIA [None]
  - PHARYNGOLARYNGEAL PAIN [None]
  - PROSTATE CANCER STAGE II [None]
  - STEVENS-JOHNSON SYNDROME [None]
